FAERS Safety Report 4652877-2 (Version None)
Quarter: 2005Q2

REPORT INFORMATION
  Report Type: 
  Country: None (occurrence: None)
  Receive Date: 20050502
  Receipt Date: 20050308
  Transmission Date: 20051028
  Serious: Yes (Death, Life-Threatening, Hospitalization)
  Sender: FDA-Public Use
  Company Number: 2005-UK-00397UK

PATIENT
  Age: 38 Year
  Sex: Male

DRUGS (6)
  1. NEVIRAPINE [Suspect]
     Indication: HIV INFECTION
     Dates: end: 20050304
  2. KALETRA [Suspect]
     Indication: HIV INFECTION
     Dates: end: 20050304
  3. DIDANOSINE [Suspect]
     Indication: HIV INFECTION
     Dates: end: 20050304
  4. CIPROFLOXACIN (NR) [Concomitant]
  5. KCL (POTASSIUM CHLORIDE) (NR) [Concomitant]
  6. VITAMIN K (PHYTOMENADIONE) (NR) [Concomitant]

REACTIONS (3)
  - DIARRHOEA [None]
  - HEPATIC FAILURE [None]
  - HYPOKALAEMIA [None]
